FAERS Safety Report 9504100 (Version 1)
Quarter: 2013Q3

REPORT INFORMATION
  Report Type: Spontaneous
  Country: US (occurrence: US)
  Receive Date: 20130906
  Receipt Date: 20130906
  Transmission Date: 20140515
  Serious: No
  Sender: FDA-Public Use
  Company Number: US-BAYER-2013-108167

PATIENT
  Age: 31 Year
  Sex: Female

DRUGS (2)
  1. OCELLA [Suspect]
     Indication: POLYCYSTIC OVARIES
     Dosage: UNK
     Dates: start: 2012
  2. OCELLA [Suspect]
     Indication: CONTRACEPTION

REACTIONS (3)
  - Mood altered [None]
  - Crying [None]
  - Anger [None]
